FAERS Safety Report 21736410 (Version 1)
Quarter: 2022Q4

REPORT INFORMATION
  Report Type: Spontaneous
  Country: CO (occurrence: CO)
  Receive Date: 20221215
  Receipt Date: 20221215
  Transmission Date: 20230113
  Serious: Yes (Other)
  Sender: FDA-Public Use
  Company Number: CO-TOLMAR, INC.-22CO037668

PATIENT
  Age: 69 Year
  Sex: Male

DRUGS (1)
  1. ELIGARD [Suspect]
     Active Substance: LEUPROLIDE ACETATE
     Indication: Prostate cancer
     Dosage: 45 MILLIGRAM, Q 6 MONTH
     Route: 058
     Dates: start: 20220825

REACTIONS (3)
  - Drug ineffective [Not Recovered/Not Resolved]
  - Blood testosterone increased [Unknown]
  - Product administration error [Unknown]

NARRATIVE: CASE EVENT DATE: 20220825
